FAERS Safety Report 8620330-7 (Version None)
Quarter: 2012Q3

REPORT INFORMATION
  Report Type: 
  Country: None (occurrence: None)
  Receive Date: 20120824
  Receipt Date: 20120815
  Transmission Date: 20120928
  Serious: Yes (Hospitalization, Disabling, Other)
  Sender: FDA-Public Use
  Company Number: US-009507513-1206USA04850

PATIENT

DRUGS (2)
  1. FOSAMAX [Suspect]
     Indication: OSTEOPOROSIS PROPHYLAXIS
     Dosage: 70 MG, UNK
     Route: 048
     Dates: start: 19970122
  2. FOSAMAX [Suspect]
     Indication: OSTEOPENIA

REACTIONS (24)
  - FEMUR FRACTURE [None]
  - LOW TURNOVER OSTEOPATHY [None]
  - DIABETES MELLITUS [None]
  - CHOLECYSTECTOMY [None]
  - HAEMATURIA [None]
  - ANAEMIA POSTOPERATIVE [None]
  - DENTAL IMPLANTATION [None]
  - OPEN REDUCTION OF FRACTURE [None]
  - FALL [None]
  - SPINAL FRACTURE [None]
  - ARTHRITIS [None]
  - FEMALE GENITAL TRACT FISTULA [None]
  - PELVIC FRACTURE [None]
  - DEMENTIA [None]
  - GASTROOESOPHAGEAL REFLUX DISEASE [None]
  - HYPERTENSION [None]
  - CEREBRAL SMALL VESSEL ISCHAEMIC DISEASE [None]
  - SPINAL OPERATION [None]
  - CONFUSIONAL STATE [None]
  - SPINAL COLUMN STENOSIS [None]
  - FRACTURE DELAYED UNION [None]
  - OSTEOPOROSIS [None]
  - CROHN'S DISEASE [None]
  - BACK PAIN [None]
